FAERS Safety Report 4967105-8 (Version None)
Quarter: 2006Q2

REPORT INFORMATION
  Report Type: 
  Country: None (occurrence: None)
  Receive Date: 20060403
  Receipt Date: 20051228
  Transmission Date: 20061013
  Serious: Yes (Hospitalization)
  Sender: FDA-Public Use
  Company Number: 2005150967

PATIENT
  Age: 47 Year
  Sex: Female

DRUGS (1)
  1. XALATAN [Suspect]
     Indication: GLAUCOMA
     Dosage: 1 DROP (1 IN 1 D), OPHTHALMIC
     Route: 047
     Dates: start: 19990101, end: 20051208

REACTIONS (1)
  - GLAUCOMA SURGERY [None]
